FAERS Safety Report 15319940 (Version 1)
Quarter: 2018Q3

REPORT INFORMATION
  Report Type: Spontaneous
  Country: SE (occurrence: SE)
  Receive Date: 20180827
  Receipt Date: 20180827
  Transmission Date: 20181010
  Serious: Yes (Hospitalization)
  Sender: FDA-Public Use
  Company Number: SE-STRIDES ARCOLAB LIMITED-2018SP007076

PATIENT

DRUGS (1)
  1. PROMETHAZINE HYDROCHLORIDE. [Suspect]
     Active Substance: PROMETHAZINE HYDROCHLORIDE
     Indication: PRODUCT USED FOR UNKNOWN INDICATION
     Dosage: 25 MG, 100?TABLET BOTTLE, ONLY 10 TABLETS REMAINING IN IT
     Route: 065

REACTIONS (17)
  - Seizure [Recovered/Resolved]
  - Overdose [Recovered/Resolved]
  - Obstructive airways disorder [Recovered/Resolved]
  - Psychomotor hyperactivity [Recovered/Resolved]
  - Visual impairment [Recovered/Resolved]
  - Muscle contracture [Recovered/Resolved]
  - Bladder dilatation [Recovered/Resolved]
  - Dyspnoea [Recovered/Resolved]
  - Hallucination, visual [Recovered/Resolved]
  - Confusional state [Recovered/Resolved]
  - Toxicity to various agents [Recovered/Resolved]
  - Communication disorder [Recovered/Resolved]
  - Dyskinesia [Recovered/Resolved]
  - Sinus tachycardia [Recovered/Resolved]
  - Depressed level of consciousness [Recovered/Resolved]
  - Mydriasis [Unknown]
  - Loss of consciousness [Recovered/Resolved]
